FAERS Safety Report 18858527 (Version 1)
Quarter: 2021Q1

REPORT INFORMATION
  Report Type: Spontaneous
  Country: US (occurrence: US)
  Receive Date: 20210208
  Receipt Date: 20210208
  Transmission Date: 20210420
  Serious: No
  Sender: FDA-Public Use
  Company Number: US-BAYER-2021-054902

PATIENT
  Sex: Female

DRUGS (3)
  1. ALEVE [Suspect]
     Active Substance: NAPROXEN SODIUM
     Indication: FOOT FRACTURE
     Dosage: UNK
     Route: 065
     Dates: start: 20210110
  2. ALEVE [Suspect]
     Active Substance: NAPROXEN SODIUM
     Indication: INFLAMMATION
  3. ALEVE [Suspect]
     Active Substance: NAPROXEN SODIUM
     Indication: FOOT FRACTURE

REACTIONS (2)
  - Product use in unapproved indication [None]
  - Nausea [None]

NARRATIVE: CASE EVENT DATE: 2021
